FAERS Safety Report 23584290 (Version 2)
Quarter: 2024Q1

REPORT INFORMATION
  Report Type: Spontaneous
  Country: PK (occurrence: PK)
  Receive Date: 20240301
  Receipt Date: 20240328
  Transmission Date: 20240410
  Serious: Yes (Other)
  Sender: FDA-Public Use
  Company Number: PK-PFIZER INC-PV202300030700

PATIENT
  Age: 27 Year
  Sex: Female

DRUGS (2)
  1. ENBREL [Suspect]
     Active Substance: ETANERCEPT
     Indication: Rheumatoid arthritis
     Dosage: 50 MG, WEEKLY
     Route: 058
     Dates: start: 20220201
  2. ENBREL [Suspect]
     Active Substance: ETANERCEPT
     Dosage: 50 MG, EVERY 3 WEEKS
     Route: 058

REACTIONS (6)
  - Sjogren^s syndrome [Unknown]
  - Dry eye [Unknown]
  - Dry mouth [Unknown]
  - Red blood cell sedimentation rate increased [Unknown]
  - Blood creatinine decreased [Unknown]
  - Off label use [Unknown]
